FAERS Safety Report 6389204-9 (Version None)
Quarter: 2009Q4

REPORT INFORMATION
  Report Type: 
  Country: None (occurrence: None)
  Receive Date: 20091006
  Receipt Date: 20090923
  Transmission Date: 20100525
  Serious: Yes (Hospitalization)
  Sender: FDA-Public Use
  Company Number: PHHY2009FR40974

PATIENT
  Sex: Male

DRUGS (3)
  1. AREDIA [Suspect]
     Dosage: UNK
     Dates: start: 20090815
  2. LASILIX [Concomitant]
  3. CALCIPARINE ^DIFREX^ [Concomitant]

REACTIONS (5)
  - CANDIDA SEPSIS [None]
  - HYPOCALCAEMIA [None]
  - PARATHYROID GLAND ENLARGEMENT [None]
  - RENAL IMPAIRMENT [None]
  - SHOCK [None]
